FAERS Safety Report 5609221-3 (Version None)
Quarter: 2008Q1

REPORT INFORMATION
  Report Type: 
  Country: None (occurrence: None)
  Receive Date: 20080129
  Receipt Date: 20080129
  Transmission Date: 20080703
  Serious: Yes (Other)
  Sender: FDA-Public Use
  Company Number: None

PATIENT
  Age: 74 Year
  Sex: Female
  Weight: 58.9676 kg

DRUGS (2)
  1. CADUET [Suspect]
     Indication: BLOOD CHOLESTEROL
     Dosage: ONE CAPSULE DAILY PO
     Route: 048
     Dates: start: 20071028, end: 20071209
  2. CADUET [Suspect]
     Indication: BLOOD PRESSURE
     Dosage: ONE CAPSULE DAILY PO
     Route: 048
     Dates: start: 20071028, end: 20071209

REACTIONS (23)
  - ACQUIRED CLAW TOE [None]
  - ACTIVITIES OF DAILY LIVING IMPAIRED [None]
  - ANOREXIA [None]
  - ANXIETY [None]
  - ASTHENIA [None]
  - BACK PAIN [None]
  - BALANCE DISORDER [None]
  - CRYING [None]
  - DEPRESSION [None]
  - HYPERHIDROSIS [None]
  - HYPOAESTHESIA [None]
  - ILL-DEFINED DISORDER [None]
  - MUSCLE SPASMS [None]
  - MUSCULOSKELETAL PAIN [None]
  - MYALGIA [None]
  - NAUSEA [None]
  - NO THERAPEUTIC RESPONSE [None]
  - NOCTURIA [None]
  - PAIN IN EXTREMITY [None]
  - PITTING OEDEMA [None]
  - POLLAKIURIA [None]
  - RASH [None]
  - VOMITING [None]
